FAERS Safety Report 4540350-1 (Version None)
Quarter: 2004Q4

REPORT INFORMATION
  Report Type: 
  Country: None (occurrence: None)
  Receive Date: 20041228
  Receipt Date: 20041228
  Transmission Date: 20050328
  Serious: Yes (Other)
  Sender: FDA-Public Use
  Company Number: None

PATIENT
  Age: 45 Year
  Sex: Male
  Weight: 79.3795 kg

DRUGS (1)
  1. LIPITOR [Suspect]
     Dosage: 1 DAILY
     Dates: start: 20040401, end: 20041101

REACTIONS (3)
  - BLOOD CHOLESTEROL INCREASED [None]
  - MUSCLE CRAMP [None]
  - PHARMACEUTICAL PRODUCT COUNTERFEIT [None]
